FAERS Safety Report 9174764 (Version 1)
Quarter: 2013Q1

REPORT INFORMATION
  Report Type: Spontaneous
  Country: US (occurrence: US)
  Receive Date: 20130320
  Receipt Date: 20130320
  Transmission Date: 20140127
  Serious: Yes (Hospitalization)
  Sender: FDA-Public Use
  Company Number: US-PFIZER INC-2013SP002577

PATIENT
  Age: 54 Year
  Sex: Male

DRUGS (6)
  1. FLUOROURACIL [Suspect]
     Indication: ADENOCARCINOMA PANCREAS
     Dosage: UNK
  2. OXALIPLATIN [Suspect]
     Indication: ADENOCARCINOMA PANCREAS
     Dosage: UNK
  3. LEUCOVORIN [Suspect]
     Indication: ADENOCARCINOMA PANCREAS
     Dosage: UNK
  4. DEXAMETHASONE [Concomitant]
     Indication: ANTIEMETIC SUPPORTIVE CARE
     Dosage: UNK
  5. METFORMIN [Concomitant]
     Dosage: UNK
  6. INSULIN [Concomitant]
     Dosage: UNK

REACTIONS (3)
  - Blood glucose increased [Unknown]
  - Blood lactic acid increased [Unknown]
  - Nausea [Unknown]
